FAERS Safety Report 23920850 (Version 1)
Quarter: 2024Q2

REPORT INFORMATION
  Report Type: Report from Study
  Country: CA (occurrence: CA)
  Receive Date: 20240530
  Receipt Date: 20240530
  Transmission Date: 20240716
  Serious: Yes (Other)
  Sender: FDA-Public Use
  Company Number: CA-AMGEN-CANSL2024075276

PATIENT
  Age: 72 Year
  Sex: Female

DRUGS (1)
  1. LUMAKRAS [Suspect]
     Active Substance: SOTORASIB
     Indication: Non-small cell lung cancer
     Dosage: 960 MILLIGRAM, QD (TAKE 8 TABS (960MG) PO DAILY)
     Route: 048
     Dates: start: 2024, end: 2024

REACTIONS (1)
  - Autoimmune hepatitis [Unknown]
